FAERS Safety Report 7675211-2 (Version None)
Quarter: 2011Q3

REPORT INFORMATION
  Report Type: 
  Country: None (occurrence: None)
  Receive Date: 20110810
  Receipt Date: 20110810
  Transmission Date: 20111222
  Serious: Yes (Hospitalization)
  Sender: FDA-Public Use
  Company Number: None

PATIENT
  Sex: Female
  Weight: 69.853 kg

DRUGS (6)
  1. EVEROLIMUS  RAD001 [Suspect]
  2. AVASTIN [Concomitant]
  3. HALDOL [Concomitant]
  4. REGLAN [Concomitant]
  5. COLACE [Concomitant]
  6. FENTANYL-100 [Concomitant]

REACTIONS (1)
  - URINARY TRACT INFECTION [None]
